FAERS Safety Report 17215003 (Version 1)
Quarter: 2019Q4

REPORT INFORMATION
  Report Type: Spontaneous
  Country: US (occurrence: US)
  Receive Date: 20191230
  Receipt Date: 20191230
  Transmission Date: 20200122
  Serious: No
  Sender: FDA-Public Use
  Company Number: US-ASTRAZENECA-2019SF87872

PATIENT
  Sex: Male

DRUGS (1)
  1. SYNAGIS [Suspect]
     Active Substance: PALIVIZUMAB
     Indication: COARCTATION OF THE AORTA
     Dosage: 100 MG/VL
     Route: 030
     Dates: start: 201912

REACTIONS (2)
  - Bronchitis viral [Unknown]
  - Respiratory distress [Unknown]
